FAERS Safety Report 18309628 (Version 1)
Quarter: 2020Q3

REPORT INFORMATION
  Report Type: Spontaneous
  Country: US (occurrence: US)
  Receive Date: 20200925
  Receipt Date: 20200925
  Transmission Date: 20201103
  Serious: No
  Sender: FDA-Public Use
  Company Number: US-MTPC-MTDA2020-0064120

PATIENT
  Age: 63 Year
  Sex: Female

DRUGS (1)
  1. RADICAVA [Suspect]
     Active Substance: EDARAVONE
     Indication: AMYOTROPHIC LATERAL SCLEROSIS
     Dosage: 60 MILLIGRAM OVER 60 MINS FOR 14 DAYS FOLLOWED BY A 14?DAY DRUG?FREE PERIOD
     Route: 042
     Dates: start: 20200921

REACTIONS (2)
  - Device issue [Unknown]
  - Catheter site swelling [Unknown]

NARRATIVE: CASE EVENT DATE: 20200921
